FAERS Safety Report 5753755-8 (Version None)
Quarter: 2008Q2

REPORT INFORMATION
  Report Type: 
  Country: None (occurrence: None)
  Receive Date: 20080530
  Receipt Date: 20080530
  Transmission Date: 20081010
  Serious: Yes (Other)
  Sender: FDA-Public Use
  Company Number: A0730490A

PATIENT
  Age: 46 Year
  Sex: Female
  Weight: 70 kg

DRUGS (2)
  1. ALLI [Suspect]
     Indication: DRUG USE FOR UNKNOWN INDICATION
     Dates: start: 20080401, end: 20080529
  2. CLARITIN [Concomitant]

REACTIONS (3)
  - ANAL HAEMORRHAGE [None]
  - RECTAL DISCHARGE [None]
  - RECTAL HAEMORRHAGE [None]
